FAERS Safety Report 6921624-3 (Version None)
Quarter: 2010Q3

REPORT INFORMATION
  Report Type: 
  Country: None (occurrence: None)
  Receive Date: 20100812
  Receipt Date: 20100804
  Transmission Date: 20110219
  Serious: Yes (Death)
  Sender: FDA-Public Use
  Company Number: JP-MERCK-1008USA00817

PATIENT
  Age: 72 Year
  Sex: Male

DRUGS (4)
  1. PEPCID [Suspect]
     Route: 048
  2. SODIUM BICARBONATE [Concomitant]
     Route: 065
  3. CARBENIN [Concomitant]
     Route: 065
  4. ANTIMICROBIAL (UNSPECIFIED) [Concomitant]
     Route: 065

REACTIONS (1)
  - GASTROINTESTINAL PERFORATION [None]
